FAERS Safety Report 5022357-3 (Version None)
Quarter: 2006Q2

REPORT INFORMATION
  Report Type: 
  Country: None (occurrence: None)
  Receive Date: 20060609
  Receipt Date: 20060531
  Transmission Date: 20061013
  Serious: Yes (Death)
  Sender: FDA-Public Use
  Company Number: PHBS2006BR08145

PATIENT
  Age: 51 Year
  Sex: Male

DRUGS (3)
  1. ZOMETA [Suspect]
     Dosage: 1 DF, EVERY 4 WEEKS
     Route: 042
  2. ZOLADEX [Concomitant]
     Route: 065
  3. CHEMOTHERAPEUTICS,OTHER [Concomitant]
     Route: 065

REACTIONS (1)
  - DENGUE FEVER [None]
